FAERS Safety Report 4330770-2 (Version None)
Quarter: 2004Q1

REPORT INFORMATION
  Report Type: 
  Country: None (occurrence: None)
  Receive Date: 20040331
  Receipt Date: 20040312
  Transmission Date: 20041129
  Serious: Yes (Hospitalization, Other)
  Sender: FDA-Public Use
  Company Number: USA030948609

PATIENT
  Age: 82 Year
  Sex: Female
  Weight: 65 kg

DRUGS (6)
  1. FORTEO [Suspect]
     Indication: OSTEOPOROSIS
     Dosage: 20 UG/1 DAY
     Dates: start: 20030101
  2. LIPITOR [Concomitant]
  3. MEDICATION FOR HIGH BLOOD PRESSURE [Concomitant]
  4. DETROL [Concomitant]
  5. EFFEXOR [Concomitant]
  6. CALCIUM AND VITAMIN D [Concomitant]

REACTIONS (7)
  - CERVICAL VERTEBRAL FRACTURE [None]
  - DIZZINESS [None]
  - FALL [None]
  - FEELING ABNORMAL [None]
  - GASTRIC DISORDER [None]
  - PHARMACEUTICAL PRODUCT COMPLAINT [None]
  - SPINAL FUSION ACQUIRED [None]
